FAERS Safety Report 23320481 (Version 1)
Quarter: 2023Q4

REPORT INFORMATION
  Report Type: Spontaneous
  Country: US (occurrence: US)
  Receive Date: 20231220
  Receipt Date: 20231220
  Transmission Date: 20240109
  Serious: No
  Sender: FDA-Public Use
  Company Number: US-PFIZER INC-PV202300203752

PATIENT
  Age: 51 Year
  Sex: Female

DRUGS (1)
  1. IBRANCE [Suspect]
     Active Substance: PALBOCICLIB
     Indication: Breast cancer female
     Dosage: TAKE 1 TABLET PO(PER ORAL) QD(ONCE A DAY) 3 WEEKS ON 1 WEEK OFF
     Route: 048

REACTIONS (4)
  - Hepatic steatosis [Unknown]
  - Diverticulum [Unknown]
  - Neoplasm progression [Unknown]
  - Product prescribing error [Unknown]
